FAERS Safety Report 10329579 (Version 3)
Quarter: 2014Q4

REPORT INFORMATION
  Report Type: Spontaneous
  Country: IT (occurrence: IT)
  Receive Date: 20140721
  Receipt Date: 20141030
  Transmission Date: 20150528
  Serious: Yes (Hospitalization)
  Sender: FDA-Public Use
  Company Number: IT-PFIZER INC-2014200085

PATIENT
  Age: 74 Year
  Sex: Female

DRUGS (6)
  1. SEROQUEL [Concomitant]
     Active Substance: QUETIAPINE FUMARATE
     Dosage: UNK
  2. RAMIPRIL. [Suspect]
     Active Substance: RAMIPRIL
     Indication: HYPERTENSION
     Dosage: 5 MG, DAILY
     Route: 048
     Dates: start: 20130601, end: 20140712
  3. LASIX [Suspect]
     Active Substance: FUROSEMIDE
     Dosage: 12.5 MG, DAILY
     Route: 048
     Dates: start: 20130601, end: 20140712
  4. VALIUM [Concomitant]
     Active Substance: DIAZEPAM
     Dosage: 5 MG/ML, UNK
  5. BENERVA [Concomitant]
     Active Substance: THIAMINE
     Dosage: 300 MG, UNK
  6. CARDIOASPIRIN [Concomitant]
     Active Substance: ASPIRIN
     Dosage: UNK

REACTIONS (2)
  - Hyponatraemia [Recovering/Resolving]
  - Confusional state [Recovering/Resolving]

NARRATIVE: CASE EVENT DATE: 20140712
